FAERS Safety Report 11514350 (Version 1)
Quarter: 2015Q3

REPORT INFORMATION
  Report Type: Spontaneous
  Country: US (occurrence: US)
  Receive Date: 20150916
  Receipt Date: 20150916
  Transmission Date: 20151125
  Serious: No
  Sender: FDA-Public Use
  Company Number: US-PFIZER INC-2015297170

PATIENT
  Age: 32 Year
  Sex: Female
  Weight: 43.5 kg

DRUGS (2)
  1. IBRANCE [Suspect]
     Active Substance: PALBOCICLIB
     Dosage: UNK
     Route: 048
     Dates: start: 20150830
  2. IBRANCE [Suspect]
     Active Substance: PALBOCICLIB
     Indication: BREAST CANCER METASTATIC
     Dosage: 125 MG, (DAY 1-21 Q 28 DAYS)
     Route: 048
     Dates: start: 20150615

REACTIONS (1)
  - Dysphagia [Not Recovered/Not Resolved]
